FAERS Safety Report 9506771 (Version 1)
Quarter: 2013Q1

REPORT INFORMATION
  Report Type: Spontaneous
  Country: US (occurrence: None)
  Receive Date: 20130305
  Receipt Date: 20130305
  Transmission Date: 20140127
  Serious: Yes (Hospitalization, Other)
  Sender: FDA-Public Use
  Company Number: 163-21880-12051391

PATIENT
  Age: 82 Year
  Sex: Female

DRUGS (18)
  1. REVLIMID (LENALIDOMIDE) (15 MILLIGRAM, CAPSULES) [Suspect]
     Indication: PLASMA CELL MYELOMA
     Dosage: 15 MG, 21 IN 28 D, PO
     Route: 048
     Dates: start: 20111020
  2. ACETAMINOPHEN (PARACETAMOL) (TABLETS) [Concomitant]
  3. ASPIRIN (ACETYLSALICYLIC ACID) (UNKNOWN) (ACETYLSALICYLIC ACID) [Concomitant]
  4. ATNEOLOL (ATENOLOL) (TABLETS) [Concomitant]
  5. ATIVAN (LORAZEPAM) (UNKNOWN) [Concomitant]
  6. CALTRATE 600 = D (CALCITE D) (UNKNOWN) [Concomitant]
  7. DEXAMETHASONE (DEXAMETHASONE) (UNKNOWN) [Concomitant]
  8. HYCODAN (HYDROCODONE BITARTRATE) (UNKNOWN) [Concomitant]
  9. HYDROCHLOROTHIAZIDE (HYDROCHLOROTHIAZIDE) (UNKNOWN) [Concomitant]
  10. LIPITOR (ATORVASTATIN) (UNKNOWN) [Concomitant]
  11. MAGNESIUM OXIDE (MEGNESIUM OXIDE) (UNKNOWN) [Concomitant]
  12. MOUTHWASH (OTHER AGENTS FOR LOCAL ORAL TREATMENT) (UNKNOWN) [Concomitant]
  13. OMEPRAZOLE (OMEPRAZOLE) (CAPSULES) [Concomitant]
  14. PREDNISONE-DELTASONE (PREDNISONE) (CAPSULES) [Concomitant]
  15. POTASSIUM CHLORIDE (POTASSIUM CHLORIDE) (UNKNOWN) [Concomitant]
  16. BACLOFEN (BACLOFEN) (TABLETS) [Concomitant]
  17. PHENERGAN (BACLOFEN) (SUPPOSITORY) [Concomitant]
  18. ZOFRAN (ONDANSETRON HYDROCHLORIDE) (TABLETS) [Concomitant]

REACTIONS (4)
  - Cataract [None]
  - Diarrhoea [None]
  - Atrial fibrillation [None]
  - Plasma cell myeloma [None]
